FAERS Safety Report 17596434 (Version 1)
Quarter: 2020Q1

REPORT INFORMATION
  Report Type: Spontaneous
  Country: JP (occurrence: JP)
  Receive Date: 20200330
  Receipt Date: 20200330
  Transmission Date: 20200409
  Serious: Yes (Hospitalization)
  Sender: FDA-Public Use
  Company Number: JP-RECORDATI RARE DISEASES-2082092

PATIENT
  Age: 9 Month
  Sex: Male
  Weight: 11.17 kg

DRUGS (2)
  1. CARBAGLU [Suspect]
     Active Substance: CARGLUMIC ACID
     Indication: HYPERAMMONAEMIA
     Route: 048
     Dates: start: 20190717
  2. CARBAGLU [Suspect]
     Active Substance: CARGLUMIC ACID
     Route: 048

REACTIONS (1)
  - Sputum retention [Unknown]
